FAERS Safety Report 10215975 (Version 1)
Quarter: 2014Q2

REPORT INFORMATION
  Report Type: Spontaneous
  Country: US (occurrence: None)
  Receive Date: 20140603
  Receipt Date: 20140603
  Transmission Date: 20141212
  Serious: No
  Sender: FDA-Public Use
  Company Number: None

PATIENT
  Age: 68 Year
  Sex: Male

DRUGS (4)
  1. CLOPIDOGREL [Suspect]
     Indication: ANTIPLATELET THERAPY
     Route: 048
  2. JENTADUETO [Concomitant]
  3. CRESTOR [Concomitant]
  4. BYSTOLIC [Concomitant]

REACTIONS (3)
  - Contusion [None]
  - Skin discolouration [None]
  - Product substitution issue [None]
